FAERS Safety Report 8043553-7 (Version None)
Quarter: 2012Q1

REPORT INFORMATION
  Report Type: 
  Country: None (occurrence: None)
  Receive Date: 20120112
  Receipt Date: 20120111
  Transmission Date: 20120608
  Serious: Yes (Hospitalization)
  Sender: FDA-Public Use
  Company Number: US-ROCHE-1029523

PATIENT
  Sex: Male

DRUGS (11)
  1. OMALIZUMAB [Suspect]
     Indication: ASTHMA
     Route: 058
     Dates: start: 20111102
  2. IPRATROPIUM BROMIDE [Concomitant]
  3. SPIRIVA [Concomitant]
  4. VENTOLIN HFA [Concomitant]
  5. SINGULAIR [Concomitant]
  6. MUCINEX [Concomitant]
  7. ALBUTEROL [Concomitant]
  8. PLAVIX [Concomitant]
  9. QVAR 40 [Concomitant]
  10. METFORMIN HCL [Concomitant]
  11. ATROVENT [Concomitant]

REACTIONS (1)
  - LUNG INFECTION [None]
